FAERS Safety Report 23052273 (Version 3)
Quarter: 2025Q1

REPORT INFORMATION
  Report Type: Report from Study
  Country: US (occurrence: US)
  Receive Date: 20231010
  Receipt Date: 20250219
  Transmission Date: 20250408
  Serious: Yes (Other)
  Sender: ABBVIE
  Company Number: US-ABBVIE-5372307

PATIENT
  Age: 56 Year
  Sex: Female
  Weight: 76.203 kg

DRUGS (3)
  1. HUMIRA [Suspect]
     Active Substance: ADALIMUMAB
     Indication: Uveitis
     Route: 058
     Dates: start: 20200228
  2. HUMIRA [Suspect]
     Active Substance: ADALIMUMAB
     Dosage: WEEKLY?FORM STRENGTH: 40 MILLIGRAM, STOP DATE: 2020
     Route: 058
     Dates: start: 20200131
  3. HUMIRA [Suspect]
     Active Substance: ADALIMUMAB
     Route: 058
     Dates: start: 20200602

REACTIONS (7)
  - Seizure [Unknown]
  - Systemic lupus erythematosus [Unknown]
  - Autoimmune disorder [Recovering/Resolving]
  - Uveitis [Not Recovered/Not Resolved]
  - Spinal cord disorder [Recovering/Resolving]
  - Pain [Recovering/Resolving]
  - Fall [Unknown]

NARRATIVE: CASE EVENT DATE: 20210101
